FAERS Safety Report 6337314 (Version 3)
Quarter: 2018Q4

REPORT INFORMATION
  Report Type: Spontaneous
  Country: JP (occurrence: JP)
  Receive Date: 20070620
  Receipt Date: 20181116
  Transmission Date: 20190205
  Serious: Yes (Life-Threatening, Hospitalization, Other)
  Sender: FDA-Public Use
  Company Number: PHBS2007JP09945

PATIENT

DRUGS (1)
  1. GLIVEC [Suspect]
     Active Substance: IMATINIB MESYLATE
     Indication: GASTROINTESTINAL STROMAL TUMOUR
     Dosage: 400 MG, QD
     Route: 048
     Dates: start: 20070417

REACTIONS (20)
  - Peripheral coldness [None]
  - Anuria [Recovering/Resolving]
  - Cytopenia [Recovering/Resolving]
  - Shock [Recovering/Resolving]
  - Heart rate increased [Recovering/Resolving]
  - Sepsis [Recovering/Resolving]
  - Bacteraemia [Recovering/Resolving]
  - Face oedema [Recovering/Resolving]
  - Mucosal inflammation [Recovering/Resolving]
  - Pyrexia [Recovering/Resolving]
  - Bone marrow failure [Recovering/Resolving]
  - Hypotension [Recovering/Resolving]
  - Neutrophil count decreased [Recovering/Resolving]
  - Malaise [Recovering/Resolving]
  - Oxygen saturation decreased [Recovering/Resolving]
  - Febrile neutropenia [Recovering/Resolving]
  - Disseminated intravascular coagulation [Recovering/Resolving]
  - Diarrhoea [Recovering/Resolving]
  - Generalised oedema [None]
  - Oedema [Recovering/Resolving]

NARRATIVE: CASE EVENT DATE: 20070519
